FAERS Safety Report 14446227 (Version 1)
Quarter: 2018Q1

REPORT INFORMATION
  Report Type: Spontaneous
  Country: JP (occurrence: JP)
  Receive Date: 20180126
  Receipt Date: 20180126
  Transmission Date: 20180509
  Serious: Yes (Disabling, Other)
  Sender: FDA-Public Use
  Company Number: JP-009507513-1801JPN002102J

PATIENT
  Age: 2 Month
  Sex: Female

DRUGS (4)
  1. ESLAX INTRAVENOUS 25MG/2.5ML [Suspect]
     Active Substance: ROCURONIUM BROMIDE
     Dosage: 1.0MG/KG OR 1.2MG/KG AND APPROXIMATELY 0.7MG/KG WAS ADDED
     Route: 042
     Dates: start: 201611, end: 201611
  2. BRIDION [Concomitant]
     Active Substance: SUGAMMADEX
     Indication: NEUROMUSCULAR BLOCKADE REVERSAL
     Dosage: 5 MG/KG, UNK
     Route: 042
     Dates: start: 201611, end: 201611
  3. SEVOFLURANE. [Concomitant]
     Active Substance: SEVOFLURANE
     Dosage: UNK
     Route: 065
  4. PROBITOR [Concomitant]
     Dosage: UNK
     Route: 065

REACTIONS (3)
  - Overdose [Unknown]
  - Hypoxic-ischaemic encephalopathy [Unknown]
  - Respiratory arrest [Unknown]

NARRATIVE: CASE EVENT DATE: 201611
